FAERS Safety Report 9345974 (Version 2)
Quarter: 2013Q4

REPORT INFORMATION
  Report Type: Spontaneous
  Country: US (occurrence: US)
  Receive Date: 20130613
  Receipt Date: 20131113
  Transmission Date: 20140711
  Serious: Yes (Death, Hospitalization, Other)
  Sender: FDA-Public Use
  Company Number: US-ASTELLAS-2013US006130

PATIENT
  Sex: Male
  Weight: 61 kg

DRUGS (2)
  1. XTANDI [Suspect]
     Indication: PROSTATE CANCER
     Dosage: 160 MG, UID/QD
     Route: 048
     Dates: start: 20130207, end: 20130530
  2. LUPRON [Concomitant]
     Indication: PROSTATE CANCER METASTATIC
     Dosage: UNK
     Route: 065

REACTIONS (37)
  - Anaemia [Unknown]
  - Respiratory failure [Unknown]
  - Pulmonary embolism [Unknown]
  - Convulsion [Unknown]
  - Weight decreased [Unknown]
  - Haematuria [Recovered/Resolved]
  - Disorientation [Unknown]
  - Hypophagia [Unknown]
  - Excoriation [Unknown]
  - Erythema [Unknown]
  - Bladder dilatation [Unknown]
  - Dysphagia [Unknown]
  - Decubitus ulcer [Unknown]
  - Neuralgia [Unknown]
  - Muscle spasms [Unknown]
  - Sleep disorder [Unknown]
  - Hypotension [Unknown]
  - Constipation [Unknown]
  - Tachycardia [Unknown]
  - Dyspnoea exertional [Unknown]
  - Decreased appetite [Unknown]
  - Pain [Unknown]
  - Cough [Unknown]
  - Pyrexia [Unknown]
  - Nausea [Unknown]
  - Vomiting [Unknown]
  - Oral pain [Unknown]
  - Nausea [Unknown]
  - Pruritus [Unknown]
  - Diarrhoea [Unknown]
  - Anxiety [Unknown]
  - Back pain [Recovered/Resolved]
  - Asthenia [Unknown]
  - Memory impairment [Unknown]
  - Lethargy [Unknown]
  - Restlessness [Unknown]
  - Malignant neoplasm progression [Fatal]
